FAERS Safety Report 22185208 (Version 1)
Quarter: 2023Q2

REPORT INFORMATION
  Report Type: Report from Study
  Country: US (occurrence: US)
  Receive Date: 20230407
  Receipt Date: 20230407
  Transmission Date: 20230722
  Serious: Yes (Other)
  Sender: FDA-Public Use
  Company Number: US-BAYER-2023A043106

PATIENT
  Sex: Male

DRUGS (2)
  1. NUBEQA [Suspect]
     Active Substance: DAROLUTAMIDE
     Indication: Prostate cancer
     Dosage: 600 MG, BID
     Route: 048
  2. VYNDAMAX [Concomitant]
     Active Substance: TAFAMIDIS
     Dosage: 61 MG, QD
     Route: 048

REACTIONS (2)
  - Neuropathy peripheral [None]
  - Hypoaesthesia [Not Recovered/Not Resolved]
